FAERS Safety Report 15747594 (Version 1)
Quarter: 2018Q4

REPORT INFORMATION
  Report Type: Spontaneous
  Country: FR (occurrence: FR)
  Receive Date: 20181220
  Receipt Date: 20181220
  Transmission Date: 20190205
  Serious: Yes (Hospitalization)
  Sender: FDA-Public Use
  Company Number: FR-ZYDUS-031642

PATIENT
  Age: 90 Year
  Sex: Female
  Weight: 71 kg

DRUGS (6)
  1. ESOMEPRAZOLE. [Suspect]
     Active Substance: ESOMEPRAZOLE MAGNESIUM
     Indication: PRODUCT USED FOR UNKNOWN INDICATION
     Dosage: 20 MG, GASTRO-RESISTANT TABLET
     Route: 048
  2. NEBIVOLOL. [Concomitant]
     Active Substance: NEBIVOLOL
     Indication: HYPERTROPHIC CARDIOMYOPATHY
     Dosage: 5 MG, QUADRISECABLE TABLET
     Route: 048
  3. OXAZEPAM. [Concomitant]
     Active Substance: OXAZEPAM
     Indication: DEPRESSION
     Dosage: 10 MG TABLET
     Route: 048
     Dates: start: 20180712
  4. PAROXETINE. [Suspect]
     Active Substance: PAROXETINE
     Indication: DEPRESSION
     Route: 048
     Dates: end: 20180713
  5. CODEINE PHOSPHATE/PARACETAMOL [Concomitant]
     Indication: PRODUCT USED FOR UNKNOWN INDICATION
     Route: 048
  6. ACETYLSALICYLIC ACID [Concomitant]
     Active Substance: ASPIRIN
     Indication: HYPERTROPHIC CARDIOMYOPATHY
     Dosage: 160 MG POWDER FOR ORAL SOLUTION IN SACHET
     Route: 048

REACTIONS (3)
  - Malaise [Recovered/Resolved]
  - Hyponatraemia [Recovered/Resolved]
  - Balance disorder [Recovered/Resolved]

NARRATIVE: CASE EVENT DATE: 20180705
